FAERS Safety Report 19174709 (Version 1)
Quarter: 2021Q2

REPORT INFORMATION
  Report Type: Report from Study
  Country: PE (occurrence: PE)
  Receive Date: 20210423
  Receipt Date: 20210423
  Transmission Date: 20210717
  Serious: Yes (Other)
  Sender: FDA-Public Use
  Company Number: NVSC2021PE026200

PATIENT
  Age: 38 Year
  Sex: Female

DRUGS (6)
  1. KISQALI [Suspect]
     Active Substance: RIBOCICLIB
     Dosage: 600 MG/KG, QD
     Route: 048
     Dates: start: 20201124, end: 20201214
  2. KISQALI [Suspect]
     Active Substance: RIBOCICLIB
     Dosage: 600 MG, QD (STARTED FROM 13 APR)
     Route: 048
  3. KISQALI [Suspect]
     Active Substance: RIBOCICLIB
     Indication: BREAST CANCER METASTATIC
     Dosage: 400 MG, QD
     Route: 048
     Dates: start: 20201124, end: 20210405
  4. KISQALI [Suspect]
     Active Substance: RIBOCICLIB
     Dosage: 2 DF, QD
     Route: 048
     Dates: start: 20210315
  5. KISQALI [Suspect]
     Active Substance: RIBOCICLIB
     Dosage: 600 MG/KG, QD
     Route: 048
     Dates: end: 20210126
  6. KISQALI [Suspect]
     Active Substance: RIBOCICLIB
     Dosage: 200 MG, QD
     Route: 048
     Dates: start: 20210126

REACTIONS (7)
  - Liver disorder [Unknown]
  - Incorrect dose administered [Unknown]
  - Nausea [Unknown]
  - Bone cancer [Unknown]
  - Second primary malignancy [Unknown]
  - Decreased immune responsiveness [Unknown]
  - Vomiting [Unknown]

NARRATIVE: CASE EVENT DATE: 202101
